FAERS Safety Report 8296823-1 (Version None)
Quarter: 2012Q2

REPORT INFORMATION
  Report Type: 
  Country: None (occurrence: None)
  Receive Date: 20120419
  Receipt Date: 20120413
  Transmission Date: 20120825
  Serious: Yes (Other)
  Sender: FDA-Public Use
  Company Number: US-AMGEN-USASP2012012528

PATIENT
  Age: 54 Year
  Sex: Male
  Weight: 98.413 kg

DRUGS (1)
  1. NPLATE [Suspect]
     Indication: IDIOPATHIC THROMBOCYTOPENIC PURPURA
     Dosage: 10 MUG/KG, UNK
     Route: 058
     Dates: start: 20100223, end: 20120113

REACTIONS (1)
  - THERAPEUTIC RESPONSE DECREASED [None]
